FAERS Safety Report 13647269 (Version 1)
Quarter: 2017Q2

REPORT INFORMATION
  Report Type: Spontaneous
  Country: US (occurrence: US)
  Receive Date: 20170613
  Receipt Date: 20170613
  Transmission Date: 20170830
  Serious: Yes (Death)
  Sender: FDA-Public Use
  Company Number: None

PATIENT
  Age: 62 Year
  Sex: Male
  Weight: 92.9 kg

DRUGS (1)
  1. RIVAROXABAN [Suspect]
     Active Substance: RIVAROXABAN
     Indication: ATRIAL FIBRILLATION
     Route: 048
     Dates: start: 20170101, end: 20170605

REACTIONS (6)
  - Haematuria [None]
  - Pulseless electrical activity [None]
  - Abdominal distension [None]
  - Shock haemorrhagic [None]
  - Haemodynamic instability [None]
  - Bladder perforation [None]

NARRATIVE: CASE EVENT DATE: 20170606
